FAERS Safety Report 12687086 (Version 2)
Quarter: 2017Q1

REPORT INFORMATION
  Report Type: Spontaneous
  Country: US (occurrence: US)
  Receive Date: 20160825
  Receipt Date: 20170202
  Transmission Date: 20170428
  Serious: Yes (Other)
  Sender: FDA-Public Use
  Company Number: US-009507513-1608USA009476

PATIENT
  Age: 29 Year
  Sex: Female
  Weight: 136.5 kg

DRUGS (1)
  1. NEXPLANON [Suspect]
     Active Substance: ETONOGESTREL
     Indication: CONTRACEPTION
     Dosage: 1 ROD, EVERY 3 YEARS
     Route: 058
     Dates: start: 2011

REACTIONS (7)
  - Menstruation normal [Recovered/Resolved]
  - Unintended pregnancy [Recovered/Resolved]
  - Incorrect drug administration duration [Unknown]
  - Migration of implanted drug [Not Recovered/Not Resolved]
  - Weight increased [Unknown]
  - Device difficult to use [Not Recovered/Not Resolved]
  - Pregnancy with implant contraceptive [Recovered/Resolved]

NARRATIVE: CASE EVENT DATE: 2014
